FAERS Safety Report 18104549 (Version 4)
Quarter: 2020Q3

REPORT INFORMATION
  Report Type: Spontaneous
  Country: None (occurrence: US)
  Receive Date: 20200803
  Receipt Date: 20200820
  Transmission Date: 20201103
  Serious: Yes (Life-Threatening, Hospitalization, Other)
  Sender: FDA-Public Use
  Company Number: US-LUNDBECK-DKLU3019136

PATIENT
  Age: 11 Year
  Sex: Female
  Weight: 30 kg

DRUGS (22)
  1. CLONIDINE. [Interacting]
     Active Substance: CLONIDINE
     Indication: GENERALISED TONIC-CLONIC SEIZURE
     Dosage: CLONIDINE DOSE WAS WEANED
     Route: 065
  2. LORATADINE. [Interacting]
     Active Substance: LORATADINE
     Indication: GENERALISED TONIC-CLONIC SEIZURE
     Route: 048
  3. GLYCOPYRROLATE. [Concomitant]
     Active Substance: GLYCOPYRROLATE
     Route: 048
  4. CLOBAZAM. [Suspect]
     Active Substance: CLOBAZAM
     Indication: GENERALISED TONIC-CLONIC SEIZURE
     Dosage: 0.3 MG/KG/DAY
     Route: 048
  5. VALPROIC ACID. [Interacting]
     Active Substance: VALPROIC ACID
     Indication: GENERALISED TONIC-CLONIC SEIZURE
  6. DIPHENHYDRAMINE. [Interacting]
     Active Substance: DIPHENHYDRAMINE
     Indication: PRODUCT USED FOR UNKNOWN INDICATION
     Route: 048
  7. LORAZEPAM. [Concomitant]
     Active Substance: LORAZEPAM
     Dosage: 2 MG EVERY 4?6 HRS PRN (0.07 MG/KG/DOSE)
     Route: 048
  8. GLYCOPYRROLATE. [Concomitant]
     Active Substance: GLYCOPYRROLATE
     Indication: PRODUCT USED FOR UNKNOWN INDICATION
     Route: 048
  9. LORAZEPAM. [Concomitant]
     Active Substance: LORAZEPAM
     Indication: GENERALISED TONIC-CLONIC SEIZURE
     Dosage: 0.07 MG/KG
     Route: 048
  10. GLYCOPYRROLATE. [Concomitant]
     Active Substance: GLYCOPYRROLATE
     Route: 048
  11. VALPROIC ACID. [Interacting]
     Active Substance: VALPROIC ACID
     Indication: PARTIAL SEIZURES
     Dosage: 20 MG/KG LOAD
     Route: 048
  12. LORAZEPAM. [Concomitant]
     Active Substance: LORAZEPAM
     Indication: ANXIETY
     Dosage: 0.03 MG/KG/DOSE
     Route: 048
  13. GLYCOPYRROLATE. [Concomitant]
     Active Substance: GLYCOPYRROLATE
     Route: 048
  14. CLOBAZAM. [Interacting]
     Active Substance: CLOBAZAM
     Dosage: 0.5 MG/KG/DAY
     Route: 048
  15. VALPROIC ACID. [Interacting]
     Active Substance: VALPROIC ACID
     Indication: SEIZURE PROPHYLAXIS
     Dosage: 20MG/KG/DAY
     Route: 048
  16. BACLOFEN. [Concomitant]
     Active Substance: BACLOFEN
     Indication: PRODUCT USED FOR UNKNOWN INDICATION
     Dosage: 1051 MCG/DAY BY PUMP
     Route: 065
  17. CLOBAZAM. [Interacting]
     Active Substance: CLOBAZAM
     Dosage: 0.7 MG/KG/DAY
     Route: 048
  18. CLONIDINE. [Interacting]
     Active Substance: CLONIDINE
     Indication: PARTIAL SEIZURES
     Route: 048
  19. CLONAZEPAM. [Concomitant]
     Active Substance: CLONAZEPAM
     Indication: SEIZURE PROPHYLAXIS
     Route: 048
  20. CLOBAZAM. [Interacting]
     Active Substance: CLOBAZAM
     Dosage: 0.3 MG/KG/DAY
     Route: 048
  21. MELATONIN [Interacting]
     Active Substance: MELATONIN
     Indication: GENERALISED TONIC-CLONIC SEIZURE
     Route: 048
  22. LEVETIRACETAM. [Concomitant]
     Active Substance: LEVETIRACETAM
     Indication: SEIZURE
     Dosage: (80 MG/KG/DAY)
     Route: 048

REACTIONS (5)
  - Hypersomnia [Recovered/Resolved]
  - Drug interaction [Unknown]
  - Oxygen saturation decreased [Unknown]
  - Sedation [Recovered/Resolved]
  - Bradycardia [Unknown]
